FAERS Safety Report 6731064-8 (Version None)
Quarter: 2010Q2

REPORT INFORMATION
  Report Type: 
  Country: None (occurrence: None)
  Receive Date: 20100518
  Receipt Date: 20100513
  Transmission Date: 20101027
  Serious: Yes (Other)
  Sender: FDA-Public Use
  Company Number: US-BRISTOL-MYERS SQUIBB COMPANY-15106297

PATIENT

DRUGS (3)
  1. ABILIFY [Suspect]
     Indication: BIPOLAR II DISORDER
     Route: 048
  2. LAMICTAL [Suspect]
     Indication: BIPOLAR II DISORDER
     Route: 048
  3. METHAMPHETAMINE HYDROCHLORIDE [Suspect]

REACTIONS (3)
  - AGITATION [None]
  - DRUG ABUSE [None]
  - SWOLLEN TONGUE [None]
